FAERS Safety Report 22884541 (Version 2)
Quarter: 2024Q1

REPORT INFORMATION
  Report Type: Spontaneous
  Country: AR (occurrence: AR)
  Receive Date: 20230830
  Receipt Date: 20240111
  Transmission Date: 20240409
  Serious: Yes (Other)
  Sender: FDA-Public Use
  Company Number: AR-PFIZER INC-PV202300146800

PATIENT
  Age: 66 Year
  Sex: Female

DRUGS (2)
  1. IBRANCE [Suspect]
     Active Substance: PALBOCICLIB
     Indication: Breast cancer metastatic
     Dosage: 125 MG, CYCLIC (DAILY, 3X1 SCHEME)
     Dates: start: 20191206, end: 202308
  2. FULVESTRANT [Concomitant]
     Active Substance: FULVESTRANT

REACTIONS (3)
  - Anaemia [Not Recovered/Not Resolved]
  - Decreased immune responsiveness [Not Recovered/Not Resolved]
  - Heat stroke [Not Recovered/Not Resolved]

NARRATIVE: CASE EVENT DATE: 20210101
